FAERS Safety Report 19776100 (Version 2)
Quarter: 2021Q4

REPORT INFORMATION
  Report Type: Report from Study
  Country: None (occurrence: US)
  Receive Date: 20210902
  Receipt Date: 20211020
  Transmission Date: 20220303
  Serious: Yes (Hospitalization, Other)
  Sender: FDA-Public Use
  Company Number: US-ABBVIE-21K-163-3921608-00

PATIENT
  Age: 61 Year
  Sex: Male
  Weight: 95.34 kg

DRUGS (5)
  1. HUMIRA [Suspect]
     Active Substance: ADALIMUMAB
     Indication: Crohn^s disease
     Route: 058
     Dates: start: 2016
  2. PFIZER-BIONTECH COVID-19 VACCINE [Suspect]
     Active Substance: TOZINAMERAN
     Indication: COVID-19 immunisation
     Route: 030
     Dates: start: 202102, end: 202102
  3. PFIZER-BIONTECH COVID-19 VACCINE [Suspect]
     Active Substance: TOZINAMERAN
     Route: 030
     Dates: start: 202103, end: 202103
  4. PLAVIX [Concomitant]
     Active Substance: CLOPIDOGREL BISULFATE
     Indication: Cerebrovascular accident prophylaxis
  5. ASPIRIN [Concomitant]
     Active Substance: ASPIRIN
     Indication: Cerebrovascular accident prophylaxis

REACTIONS (8)
  - Cerebral thrombosis [Not Recovered/Not Resolved]
  - Cerebrovascular accident [Recovering/Resolving]
  - Cerebrovascular accident [Recovered/Resolved]
  - Joint stiffness [Not Recovered/Not Resolved]
  - Migraine [Recovered/Resolved]
  - Visual field defect [Not Recovered/Not Resolved]
  - Hypertension [Not Recovered/Not Resolved]
  - Feeling abnormal [Not Recovered/Not Resolved]

NARRATIVE: CASE EVENT DATE: 20210301
